FAERS Safety Report 9495316 (Version 1)
Quarter: 2013Q3

REPORT INFORMATION
  Report Type: Spontaneous
  Country: GB (occurrence: None)
  Receive Date: 20130828
  Receipt Date: 20130828
  Transmission Date: 20140515
  Serious: Yes (Hospitalization, Other)
  Sender: FDA-Public Use
  Company Number: GER/UKI/13/0034299

PATIENT
  Age: 82 Year
  Sex: Female
  Weight: 65 kg

DRUGS (10)
  1. ZOLEDRONIC ACID (ZOLEDRONIC ACID) [Suspect]
     Indication: OSTEOPOROTIC FRACTURE
     Route: 042
     Dates: start: 20130305, end: 20130305
  2. WARFARIN (WARFARIN) [Suspect]
     Indication: PRODUCT USED FOR UNKNOWN INDICATION
  3. BRINZOLAMIDE (BRINZOLAMIDE) [Concomitant]
  4. CALCICHEW D3 (LEKOVIT CA) [Concomitant]
  5. CO-CODAMOL (PANADEINE CO) [Concomitant]
  6. FELODIPINE (FELODIPINE) [Concomitant]
  7. LEVOTHYROXINE (LEVOTHYROXINE) [Concomitant]
  8. TIMOLOL (TIMOLOL) [Concomitant]
  9. TOLTERODINE (TOLTERODINE) [Concomitant]
  10. VALSARTAN (VALSARTAN) [Concomitant]

REACTIONS (7)
  - International normalised ratio increased [None]
  - Joint swelling [None]
  - Mobility decreased [None]
  - Asthenia [None]
  - Subcutaneous haematoma [None]
  - Fall [None]
  - Drug interaction [None]
